FAERS Safety Report 17877661 (Version 8)
Quarter: 2020Q4

REPORT INFORMATION
  Report Type: Spontaneous
  Country: US (occurrence: US)
  Receive Date: 20200609
  Receipt Date: 20201117
  Transmission Date: 20210113
  Serious: Yes (Other)
  Sender: FDA-Public Use
  Company Number: US-AMGEN-USASP2020091625

PATIENT
  Age: 71 Year
  Sex: Female

DRUGS (1)
  1. ENBREL [Suspect]
     Active Substance: ETANERCEPT
     Indication: RHEUMATOID ARTHRITIS
     Dosage: 50 MILLIGRAM, QWK
     Route: 065

REACTIONS (9)
  - Rheumatoid arthritis [Unknown]
  - Tendon disorder [Unknown]
  - Loss of personal independence in daily activities [Unknown]
  - Impaired driving ability [Unknown]
  - Red blood cell sedimentation rate increased [Unknown]
  - Blood cholesterol increased [Unknown]
  - Device difficult to use [Unknown]
  - Therapeutic product effect decreased [Unknown]
  - Inflammation [Unknown]
